FAERS Safety Report 8244700-4 (Version None)
Quarter: 2012Q1

REPORT INFORMATION
  Report Type: 
  Country: None (occurrence: None)
  Receive Date: 20120329
  Receipt Date: 20110202
  Transmission Date: 20120608
  Serious: No
  Sender: FDA-Public Use
  Company Number: US-MYLANLABS-2011S1002469

PATIENT
  Age: 74 Year
  Sex: Male
  Weight: 83.92 kg

DRUGS (9)
  1. AVODART [Concomitant]
     Indication: BENIGN PROSTATIC HYPERPLASIA
  2. THYROID TAB [Concomitant]
     Indication: HYPOTHYROIDISM
     Dates: start: 20090101
  3. FENTANYL-100 [Suspect]
     Dosage: CHANGED Q. 72 HOURS.
     Route: 062
     Dates: start: 20110131
  4. FLOMAX [Concomitant]
     Indication: BENIGN PROSTATIC HYPERPLASIA
  5. PAXIL [Concomitant]
  6. FENTANYL-100 [Suspect]
     Indication: HEADACHE
     Dosage: Q72H
     Route: 062
     Dates: start: 20101201, end: 20110131
  7. FENTANYL-100 [Suspect]
     Dosage: CHANGED Q. 72 HOURS.
     Route: 062
     Dates: start: 20110131
  8. PREDNISONE TAB [Concomitant]
     Indication: MYALGIA
     Dates: start: 20060101
  9. METOPROLOL SUCCINATE [Concomitant]
     Indication: ARRHYTHMIA

REACTIONS (4)
  - DYSPEPSIA [None]
  - CONFUSIONAL STATE [None]
  - DRUG EFFECT INCREASED [None]
  - DYSPHAGIA [None]
